FAERS Safety Report 18869732 (Version 2)
Quarter: 2024Q1

REPORT INFORMATION
  Report Type: Other
  Country: CN (occurrence: None)
  Receive Date: 20210209
  Receipt Date: 20240222
  Transmission Date: 20240410
  Serious: Yes (Other)
  Sender: FDA-Public Use
  Company Number: CN-ROCHE-2765264

PATIENT

DRUGS (1)
  1. ALTEPLASE [Suspect]
     Active Substance: ALTEPLASE
     Indication: Ischaemic stroke
     Dosage: 0.9 MG/KG OF BODY WEIGHT; 10% ADMINISTERED AS A BOLUS FOLLOWED BY 1-HOUR INFUSION OF THE REMAINING D
     Route: 042

REACTIONS (8)
  - Cerebral haemorrhage [Unknown]
  - Cerebral haemorrhage [Unknown]
  - Subarachnoid haemorrhage [Unknown]
  - Haemorrhagic infarction [Unknown]
  - Cerebral haematoma [Unknown]
  - Middle cerebral artery stroke [Unknown]
  - Acute respiratory failure [Unknown]
  - Cardiac failure acute [Unknown]
